FAERS Safety Report 18435405 (Version 1)
Quarter: 2020Q4

REPORT INFORMATION
  Report Type: Spontaneous
  Country: US (occurrence: US)
  Receive Date: 20201027
  Receipt Date: 20201027
  Transmission Date: 20210114
  Serious: Yes (Other)
  Sender: FDA-Public Use
  Company Number: None

PATIENT
  Age: 44 Year
  Sex: Male
  Weight: 131.6 kg

DRUGS (1)
  1. ORITAVANCIN. [Suspect]
     Active Substance: ORITAVANCIN
     Indication: CELLULITIS
     Dosage: ?          OTHER FREQUENCY:Q 7 DAYS;?
     Route: 042
     Dates: start: 20201025, end: 20201025

REACTIONS (7)
  - Infusion related reaction [None]
  - Hypertension [None]
  - Chills [None]
  - Tremor [None]
  - Headache [None]
  - Therapy interrupted [None]
  - Tachycardia [None]

NARRATIVE: CASE EVENT DATE: 20201025
